FAERS Safety Report 17360075 (Version 1)
Quarter: 2020Q1

REPORT INFORMATION
  Report Type: Spontaneous
  Country: US (occurrence: US)
  Receive Date: 20200203
  Receipt Date: 20200203
  Transmission Date: 20200409
  Serious: No
  Sender: FDA-Public Use
  Company Number: US-GW PHARMA-202001USGW00337

PATIENT

DRUGS (3)
  1. FYCOMPA [Suspect]
     Active Substance: PERAMPANEL
     Indication: PRODUCT USED FOR UNKNOWN INDICATION
     Dosage: DOSE DECREASED ON 24-JAN-2020
     Route: 065
  2. EPIDIOLEX [Suspect]
     Active Substance: CANNABIDIOL
     Dosage: DOSE INCREASED
     Route: 048
     Dates: start: 20200124
  3. EPIDIOLEX [Suspect]
     Active Substance: CANNABIDIOL
     Indication: EPILEPSY
     Dosage: 250 MILLIGRAM, BID
     Route: 048
     Dates: start: 20190101, end: 20200123

REACTIONS (3)
  - Musculoskeletal stiffness [Unknown]
  - Lethargy [Unknown]
  - Constipation [Unknown]

NARRATIVE: CASE EVENT DATE: 20190125
